FAERS Safety Report 5339187-5 (Version None)
Quarter: 2007Q2

REPORT INFORMATION
  Report Type: 
  Country: None (occurrence: None)
  Receive Date: 20070530
  Receipt Date: 20070523
  Transmission Date: 20071010
  Serious: Yes (Death, Hospitalization, Other)
  Sender: FDA-Public Use
  Company Number: RO-ABBOTT-07P-135-0368222-00

PATIENT
  Age: 17 Year
  Sex: Male
  Weight: 55 kg

DRUGS (2)
  1. KALETRA [Suspect]
     Indication: ACQUIRED IMMUNODEFICIENCY SYNDROME
     Route: 048
     Dates: start: 20070322, end: 20070411
  2. TRIZIVIR [Concomitant]
     Indication: ACQUIRED IMMUNODEFICIENCY SYNDROME
     Route: 048
     Dates: start: 20070322, end: 20070411

REACTIONS (12)
  - ACQUIRED IMMUNODEFICIENCY SYNDROME [None]
  - BACTERIAL SEPSIS [None]
  - CACHEXIA [None]
  - CARDIOPULMONARY FAILURE [None]
  - HEPATIC FAILURE [None]
  - HEPATOMEGALY [None]
  - PNEUMOCYSTIS JIROVECI PNEUMONIA [None]
  - PYREXIA [None]
  - RENAL FAILURE ACUTE [None]
  - SPLENOMEGALY [None]
  - SYSTEMIC CANDIDA [None]
  - TUBERCULOSIS [None]
